FAERS Safety Report 9623972 (Version 1)
Quarter: 2013Q4

REPORT INFORMATION
  Report Type: Spontaneous
  Country: US (occurrence: US)
  Receive Date: 20131015
  Receipt Date: 20131015
  Transmission Date: 20140711
  Serious: Yes (Hospitalization)
  Sender: FDA-Public Use
  Company Number: US-CELGENEUS-163-21880-13100906

PATIENT
  Age: 75 Year
  Sex: Male

DRUGS (2)
  1. REVLIMID [Suspect]
     Indication: MYELODYSPLASTIC SYNDROME
     Dosage: 5 MILLIGRAM
     Route: 048
     Dates: start: 201308
  2. REVLIMID [Suspect]
     Dosage: 5 MILLIGRAM
     Route: 048
     Dates: start: 20130918

REACTIONS (1)
  - Diabetes mellitus [Unknown]
